FAERS Safety Report 7965802-3 (Version None)
Quarter: 2011Q4

REPORT INFORMATION
  Report Type: 
  Country: None (occurrence: None)
  Receive Date: 20111208
  Receipt Date: 20111128
  Transmission Date: 20120403
  Serious: Yes (Other)
  Sender: FDA-Public Use
  Company Number: US-ABBOTT-11P-163-0863822-06

PATIENT
  Sex: Female

DRUGS (16)
  1. CIMZIA [Concomitant]
     Indication: CROHN'S DISEASE
     Route: 058
     Dates: start: 20100331, end: 20100331
  2. FLINTSTONES MULTIPLE VITAMINS [Concomitant]
     Indication: VITAMIN SUPPLEMENTATION
     Dates: start: 20060101
  3. ALBUTEROL [Concomitant]
     Indication: PRODUCT USED FOR UNKNOWN INDICATION
     Dates: start: 20091123
  4. HUMALOG [Concomitant]
     Indication: DIABETES MELLITUS
     Dosage: SLIDING SCALE - MAXIMUM DOSE 20 U
     Dates: start: 20060101
  5. FOLIC ACID [Concomitant]
     Indication: VITAMIN SUPPLEMENTATION
     Dates: start: 20040919
  6. LANTUS [Concomitant]
     Indication: DIABETES MELLITUS
     Dosage: AT BEDTIME
     Dates: start: 20070101
  7. HUMIRA [Suspect]
     Indication: CROHN'S DISEASE
     Dosage: BASELINE
     Route: 058
     Dates: start: 20080222, end: 20080222
  8. MAGNESIUM OXIDE [Concomitant]
     Indication: PRODUCT USED FOR UNKNOWN INDICATION
     Dates: start: 20091019
  9. CALCIUM [Concomitant]
     Indication: MINERAL SUPPLEMENTATION
     Dates: start: 20080122
  10. CIMZIA [Concomitant]
     Route: 058
     Dates: end: 20101105
  11. HUMIRA [Suspect]
     Route: 058
     Dates: end: 20100316
  12. STOMATOLOGICALS, MOUTH PREPARATIONS [Concomitant]
     Indication: PRODUCT USED FOR UNKNOWN INDICATION
     Dates: start: 20100127
  13. ULTRAM [Concomitant]
     Indication: PAIN
     Dates: start: 20090902
  14. HUMIRA [Suspect]
     Dosage: BASELINE
     Route: 058
  15. TYSABRI [Concomitant]
     Indication: CROHN'S DISEASE
     Dosage: 300MG/15ML
     Dates: start: 20110101
  16. CIMZIA [Concomitant]
     Route: 058
     Dates: start: 20100414, end: 20100414

REACTIONS (2)
  - NERVOUS SYSTEM DISORDER [None]
  - DEAFNESS NEUROSENSORY [None]
